FAERS Safety Report 10692988 (Version 1)
Quarter: 2015Q1

REPORT INFORMATION
  Report Type: Spontaneous
  Country: ES (occurrence: ES)
  Receive Date: 20150106
  Receipt Date: 20150106
  Transmission Date: 20150720
  Serious: Yes (Other)
  Sender: FDA-Public Use
  Company Number: ES-MERCK-1501ESP000546

PATIENT
  Age: 3 Year
  Sex: Male
  Weight: 17 kg

DRUGS (1)
  1. SINGULAIR [Suspect]
     Active Substance: MONTELUKAST SODIUM
     Indication: COUGH
     Route: 048
     Dates: start: 20141217, end: 20141218

REACTIONS (3)
  - Akathisia [Recovered/Resolved]
  - Insomnia [Recovered/Resolved]
  - Irritability [Recovered/Resolved]

NARRATIVE: CASE EVENT DATE: 20141217
